FAERS Safety Report 18796941 (Version 1)
Quarter: 2021Q1

REPORT INFORMATION
  Report Type: Report from Study
  Country: GT (occurrence: GT)
  Receive Date: 20210127
  Receipt Date: 20210127
  Transmission Date: 20210419
  Serious: Yes (Other)
  Sender: FDA-Public Use
  Company Number: NVSC2021GT016316

PATIENT
  Age: 74 Year
  Sex: Male

DRUGS (1)
  1. EXFORGE HCT [Suspect]
     Active Substance: AMLODIPINE BESYLATE\HYDROCHLOROTHIAZIDE\VALSARTAN
     Indication: PRODUCT USED FOR UNKNOWN INDICATION
     Dosage: 10/320/25 MG (3 MONTHS AGO)
     Route: 065

REACTIONS (5)
  - Loss of consciousness [Unknown]
  - Gait inability [Unknown]
  - Limb discomfort [Unknown]
  - Aphasia [Unknown]
  - Cerebrovascular accident [Unknown]
